FAERS Safety Report 5206180-2 (Version None)
Quarter: 2006Q4

REPORT INFORMATION
  Report Type: 
  Country: None (occurrence: None)
  Receive Date: 20061026
  Receipt Date: 20060925
  Transmission Date: 20070319
  Serious: No
  Sender: FDA-Public Use
  Company Number: 2006117749

PATIENT
  Sex: Male

DRUGS (1)
  1. LYRICA [Suspect]

REACTIONS (4)
  - AGITATED DEPRESSION [None]
  - AGITATION [None]
  - DIZZINESS [None]
  - FATIGUE [None]
